FAERS Safety Report 12579870 (Version 27)
Quarter: 2021Q3

REPORT INFORMATION
  Report Type: Report from Study
  Country: PA (occurrence: PA)
  Receive Date: 20160721
  Receipt Date: 20210821
  Transmission Date: 20211014
  Serious: Yes (Life-Threatening, Hospitalization, Disabling, Other)
  Sender: FDA-Public Use
  Company Number: PHHY2016PA099776

PATIENT
  Age: 55 Year
  Sex: Male
  Weight: 72 kg

DRUGS (13)
  1. AMLODIPINE [Suspect]
     Active Substance: AMLODIPINE BESYLATE
     Indication: HYPERTENSION
     Dosage: 1 DF, BID (ONE EVERY 12 HOURS)
     Route: 065
  2. AMLODIPINE [Suspect]
     Active Substance: AMLODIPINE BESYLATE
     Dosage: 5 MG, QD
     Route: 065
  3. GILENYA [Suspect]
     Active Substance: FINGOLIMOD HYDROCHLORIDE
     Indication: MULTIPLE SCLEROSIS
     Dosage: 0.5 MG, QD
     Route: 048
     Dates: start: 20160506
  4. GILENYA [Suspect]
     Active Substance: FINGOLIMOD HYDROCHLORIDE
     Dosage: 0.5 MG, QD
     Route: 065
     Dates: start: 20171025
  5. OXYCODONE HYDROCHLORIDE. [Suspect]
     Active Substance: OXYCODONE HYDROCHLORIDE
     Indication: PAIN
     Dosage: UNK
     Route: 065
  6. FENOFIBRATE. [Concomitant]
     Active Substance: FENOFIBRATE
     Indication: PRODUCT USED FOR UNKNOWN INDICATION
     Dosage: 250 MG, QN
     Route: 065
  7. GILENYA [Suspect]
     Active Substance: FINGOLIMOD HYDROCHLORIDE
     Dosage: 0.5 MG (IN THE MORNING WITH BREAKFAST)
     Route: 065
  8. CARBAMAZEPINE. [Suspect]
     Active Substance: CARBAMAZEPINE
     Indication: PRODUCT USED FOR UNKNOWN INDICATION
     Dosage: 200 MG, Q8H
     Route: 065
  9. GILENYA [Suspect]
     Active Substance: FINGOLIMOD HYDROCHLORIDE
     Dosage: 0.5 MG, QD
     Route: 065
     Dates: start: 20170228
  10. GILENYA [Suspect]
     Active Substance: FINGOLIMOD HYDROCHLORIDE
     Dosage: 0.5 MG, QD
     Route: 065
     Dates: start: 20180319
  11. GILENYA [Suspect]
     Active Substance: FINGOLIMOD HYDROCHLORIDE
     Dosage: 0.5 MG, QOD
     Route: 065
  12. ESCITALOPRAM [Suspect]
     Active Substance: ESCITALOPRAM OXALATE
     Indication: SLEEP DISORDER
     Dosage: 10 MG, QD
     Route: 065
  13. SIMVASTATIN. [Concomitant]
     Active Substance: SIMVASTATIN
     Indication: PRODUCT USED FOR UNKNOWN INDICATION
     Dosage: 10 MG, BID
     Route: 065

REACTIONS (72)
  - Platelet count decreased [Unknown]
  - Speech disorder [Recovering/Resolving]
  - Myalgia [Unknown]
  - Muscle spasticity [Unknown]
  - Cold type haemolytic anaemia [Unknown]
  - Lymphocyte count decreased [Unknown]
  - Muscle spasms [Unknown]
  - Granulocyte count decreased [Unknown]
  - Red cell distribution width increased [Unknown]
  - Monocyte percentage increased [Unknown]
  - Red blood cell sedimentation rate increased [Unknown]
  - Muscle contractions involuntary [Unknown]
  - Cardiac dysfunction [Unknown]
  - Ileus paralytic [Unknown]
  - Rheumatoid factor increased [Unknown]
  - Bradycardia [Unknown]
  - Muscle disorder [Unknown]
  - Nausea [Recovering/Resolving]
  - Cognitive disorder [Recovered/Resolved]
  - Movement disorder [Unknown]
  - Nuchal rigidity [Unknown]
  - Mobility decreased [Unknown]
  - Back pain [Unknown]
  - Mean cell volume increased [Unknown]
  - Red blood cell count decreased [Unknown]
  - Blood cholesterol increased [Unknown]
  - Abdominal pain [Not Recovered/Not Resolved]
  - Leukopenia [Unknown]
  - Malaise [Unknown]
  - Obstruction [Unknown]
  - Haemoglobin decreased [Unknown]
  - Diarrhoea [Unknown]
  - Dysstasia [Unknown]
  - Neuropathy peripheral [Unknown]
  - Heat stroke [Unknown]
  - Intervertebral disc protrusion [Unknown]
  - Irritable bowel syndrome [Recovering/Resolving]
  - Muscle strain [Unknown]
  - Plateletcrit decreased [Unknown]
  - Blood sodium decreased [Unknown]
  - Blood potassium decreased [Unknown]
  - Intracardiac mass [Unknown]
  - Prescribed underdose [Unknown]
  - Lymphopenia [Not Recovered/Not Resolved]
  - Dehydration [Unknown]
  - Muscle rigidity [Unknown]
  - Intervertebral disc disorder [Recovering/Resolving]
  - Haemoptysis [Unknown]
  - Blood pressure decreased [Unknown]
  - Bladder discomfort [Unknown]
  - Blood lactate dehydrogenase decreased [Unknown]
  - Cardiac disorder [Unknown]
  - Gastrointestinal pain [Recovering/Resolving]
  - Blood triglycerides increased [Unknown]
  - Amnesia [Recovered/Resolved with Sequelae]
  - Memory impairment [Unknown]
  - Dyskinesia [Unknown]
  - Asphyxia [Unknown]
  - Hernia pain [Unknown]
  - Myopathy [Unknown]
  - Neuralgia [Unknown]
  - Low density lipoprotein increased [Unknown]
  - Alanine aminotransferase increased [Unknown]
  - Multiple sclerosis relapse [Recovering/Resolving]
  - Seizure [Recovered/Resolved with Sequelae]
  - Constipation [Not Recovered/Not Resolved]
  - Gastric disorder [Unknown]
  - Intervertebral discitis [Unknown]
  - Diverticulitis [Unknown]
  - Eosinophil percentage increased [Unknown]
  - Procalcitonin decreased [Unknown]
  - Spinal pain [Unknown]

NARRATIVE: CASE EVENT DATE: 20140617
